FAERS Safety Report 20428151 (Version 1)
Quarter: 2022Q1

REPORT INFORMATION
  Report Type: Spontaneous
  Country: SE (occurrence: SE)
  Receive Date: 20220204
  Receipt Date: 20220204
  Transmission Date: 20220423
  Serious: Yes (Life-Threatening)
  Sender: FDA-Public Use
  Company Number: None

PATIENT
  Age: 91 Year
  Sex: Male

DRUGS (13)
  1. OMEPRAZOLE [Suspect]
     Active Substance: OMEPRAZOLE
     Route: 048
     Dates: end: 202108
  2. LEUPROLIDE ACETATE [Concomitant]
     Active Substance: LEUPROLIDE ACETATE
  3. OXAZEPAM [Concomitant]
     Active Substance: OXAZEPAM
  4. RETACRIT [Concomitant]
     Active Substance: EPOETIN ALFA-EPBX
  5. LERCANIDIPINE [Concomitant]
     Active Substance: LERCANIDIPINE
  6. betolvex [Concomitant]
  7. MELATONIN [Concomitant]
     Active Substance: MELATONIN
  8. folacin [Concomitant]
  9. FUROSEMIDE [Concomitant]
     Active Substance: FUROSEMIDE
  10. ACETAMINOPHEN [Concomitant]
     Active Substance: ACETAMINOPHEN
  11. LINAGLIPTIN [Concomitant]
     Active Substance: LINAGLIPTIN
  12. ALLOPURINOL [Concomitant]
     Active Substance: ALLOPURINOL
  13. ELIQUIS [Concomitant]
     Active Substance: APIXABAN

REACTIONS (1)
  - Hypomagnesaemia [Recovered/Resolved]

NARRATIVE: CASE EVENT DATE: 20210801
